FAERS Safety Report 25299350 (Version 1)
Quarter: 2025Q2

REPORT INFORMATION
  Report Type: Spontaneous
  Country: TR (occurrence: TR)
  Receive Date: 20250512
  Receipt Date: 20250512
  Transmission Date: 20250716
  Serious: Yes (Hospitalization)
  Sender: NOVITIUM PHARMA
  Company Number: TR-NOVITIUMPHARMA-2025TRNVP01127

PATIENT
  Age: 6 Year
  Sex: Female
  Weight: 25 kg

DRUGS (7)
  1. HYDROXYCHLOROQUINE SULFATE [Suspect]
     Active Substance: HYDROXYCHLOROQUINE SULFATE
     Indication: Pulmonary haemosiderosis
  2. HYDROXYCHLOROQUINE SULFATE [Suspect]
     Active Substance: HYDROXYCHLOROQUINE SULFATE
     Dosage: DOSE INCREASED
  3. HYDROXYCHLOROQUINE SULFATE [Suspect]
     Active Substance: HYDROXYCHLOROQUINE SULFATE
  4. METHYLPREDNISOLONE [Concomitant]
     Active Substance: METHYLPREDNISOLONE
     Indication: Pulmonary haemosiderosis
  5. ENALAPRIL [Concomitant]
     Active Substance: ENALAPRIL
     Indication: Focal segmental glomerulosclerosis
  6. CEFTRIAXONE [Concomitant]
     Active Substance: CEFTRIAXONE
  7. CLARITHROMYCIN [Concomitant]
     Active Substance: CLARITHROMYCIN

REACTIONS (2)
  - Drug interaction [Unknown]
  - Neuropsychological symptoms [Recovered/Resolved]
